FAERS Safety Report 9124626 (Version 2)
Quarter: 2013Q1

REPORT INFORMATION
  Report Type: Spontaneous
  Country: PT (occurrence: PT)
  Receive Date: 20130227
  Receipt Date: 20130305
  Transmission Date: 20140127
  Serious: No
  Sender: FDA-Public Use
  Company Number: PT-ELI_LILLY_AND_COMPANY-PT201302007587

PATIENT
  Sex: Female
  Weight: 72 kg

DRUGS (2)
  1. RALOXIFENE HYDROCHLORIDE [Suspect]
     Dosage: 60 MG, QD
     Route: 048
  2. RALOXIFENE HYDROCHLORIDE [Suspect]
     Dosage: 60 MG, QD
     Dates: end: 201302

REACTIONS (1)
  - Burning sensation [Recovered/Resolved with Sequelae]
